FAERS Safety Report 4705454-9 (Version None)
Quarter: 2005Q2

REPORT INFORMATION
  Report Type: 
  Country: None (occurrence: None)
  Receive Date: 20050629
  Receipt Date: 20050418
  Transmission Date: 20051028
  Serious: Yes (Other)
  Sender: FDA-Public Use
  Company Number: 200513004US

PATIENT
  Age: 55 Year
  Sex: Female
  Weight: 86.4 kg

DRUGS (11)
  1. QVAR 40 [Suspect]
     Indication: ASTHMA
     Dosage: QD INH
     Route: 055
     Dates: start: 20040329, end: 20050330
  2. ARTHROTEC [Suspect]
     Indication: ARTHRITIS
     Dosage: QD PO
     Route: 048
     Dates: start: 20050201
  3. ZOCOR [Suspect]
     Indication: HYPERCHOLESTEROLAEMIA
     Dates: start: 20040401, end: 20050413
  4. ZYRTEC [Concomitant]
  5. NORVASC [Concomitant]
  6. ACCOLATE [Concomitant]
  7. PREVACID [Concomitant]
  8. CELEBREX [Concomitant]
  9. NEURONTIN [Concomitant]
  10. IRON [Concomitant]
  11. EXTRA STRENGTH TYLENOL [Concomitant]

REACTIONS (2)
  - ALANINE AMINOTRANSFERASE INCREASED [None]
  - ASPARTATE AMINOTRANSFERASE INCREASED [None]
